FAERS Safety Report 7389148-X (Version None)
Quarter: 2011Q2

REPORT INFORMATION
  Report Type: 
  Country: None (occurrence: None)
  Receive Date: 20110401
  Receipt Date: 20110324
  Transmission Date: 20111010
  Serious: Yes (Other)
  Sender: FDA-Public Use
  Company Number: JP-ROCHE-766231

PATIENT
  Sex: Male
  Weight: 21 kg

DRUGS (2)
  1. CALONAL [Concomitant]
     Dosage: FORM : MINUTE GRAIN, SINGLE USE
     Route: 048
  2. TAMIFLU [Suspect]
     Indication: INFLUENZA
     Dosage: DOSAGE IS UNCERTAIN.
     Route: 048
     Dates: start: 20110312

REACTIONS (1)
  - ABNORMAL BEHAVIOUR [None]
